FAERS Safety Report 15321830 (Version 1)
Quarter: 2018Q3

REPORT INFORMATION
  Report Type: Spontaneous
  Country: US (occurrence: US)
  Receive Date: 20180827
  Receipt Date: 20180827
  Transmission Date: 20181010
  Serious: Yes (Other)
  Sender: FDA-Public Use
  Company Number: US-AMGEN-USASP2018115814

PATIENT
  Age: 70 Year
  Sex: Female

DRUGS (4)
  1. LORAZEPAM. [Concomitant]
     Active Substance: LORAZEPAM
  2. PROLIA [Suspect]
     Active Substance: DENOSUMAB
     Indication: OSTEOPOROSIS
     Dosage: UNK
     Route: 065
     Dates: start: 2014, end: 20180404
  3. COREG [Concomitant]
     Active Substance: CARVEDILOL
     Dosage: UNK
  4. WARFARIN [Concomitant]
     Active Substance: WARFARIN

REACTIONS (10)
  - Bone pain [Not Recovered/Not Resolved]
  - Colitis [Not Recovered/Not Resolved]
  - Groin pain [Not Recovered/Not Resolved]
  - Hypoaesthesia [Not Recovered/Not Resolved]
  - Wheelchair user [Not Recovered/Not Resolved]
  - Gout [Not Recovered/Not Resolved]
  - Herpes zoster [Not Recovered/Not Resolved]
  - Fall [Unknown]
  - Femur fracture [Unknown]
  - Epistaxis [Unknown]

NARRATIVE: CASE EVENT DATE: 201605
